FAERS Safety Report 8947846 (Version 2)
Quarter: 2013Q1

REPORT INFORMATION
  Report Type: Spontaneous
  Country: US (occurrence: None)
  Receive Date: 20121127
  Receipt Date: 20121218
  Transmission Date: 20140127
  Serious: Yes (Hospitalization)
  Sender: FDA-Public Use
  Company Number: 2012-004101

PATIENT
  Age: 18 Year
  Sex: Female

DRUGS (1)
  1. LOESTRIN 24 FE [Suspect]
     Dosage: 1000/20UG?
     Route: 048
     Dates: start: 2012

REACTIONS (2)
  - Ketoacidosis [None]
  - Metrorrhagia [None]
